FAERS Safety Report 4751353-6 (Version None)
Quarter: 2005Q3

REPORT INFORMATION
  Report Type: 
  Country: None (occurrence: None)
  Receive Date: 20050822
  Receipt Date: 20050812
  Transmission Date: 20060218
  Serious: Yes (Hospitalization)
  Sender: FDA-Public Use
  Company Number: MEDI-0003607

PATIENT
  Age: 76 Year
  Sex: Female
  Weight: 56.6996 kg

DRUGS (4)
  1. ETHYOL [Suspect]
     Indication: CHEMOTHERAPY
     Dosage: 500 MG, SUBCUTANEOUS
     Route: 058
     Dates: start: 20050718, end: 20050726
  2. TAXOL [Concomitant]
  3. CARBOPLATIN [Concomitant]
  4. RADIOTHERAPY [Concomitant]

REACTIONS (7)
  - CHILLS [None]
  - DEHYDRATION [None]
  - DIZZINESS [None]
  - INJECTION SITE RASH [None]
  - NAUSEA [None]
  - PYREXIA [None]
  - VOMITING [None]
